FAERS Safety Report 15103485 (Version 2)
Quarter: 2018Q3

REPORT INFORMATION
  Report Type: Spontaneous
  Country: US (occurrence: US)
  Receive Date: 20180703
  Receipt Date: 20180719
  Transmission Date: 20181010
  Serious: No
  Sender: FDA-Public Use
  Company Number: US-PFIZER INC-2018264248

PATIENT
  Age: 64 Year
  Sex: Female
  Weight: 70 kg

DRUGS (3)
  1. XELJANZ [Suspect]
     Active Substance: TOFACITINIB CITRATE
     Dosage: 5 MG, UNK
     Dates: start: 2016
  2. XELJANZ [Suspect]
     Active Substance: TOFACITINIB CITRATE
     Indication: RHEUMATOID ARTHRITIS
     Dosage: 5 MG, 2X/DAY (2 TABLETS DAILY, ONE IN THE MORNING AND ONE AT NIGHT)
  3. METHOTREXATE. [Suspect]
     Active Substance: METHOTREXATE
     Indication: RHEUMATOID ARTHRITIS
     Dosage: 6 DF, 1X/DAY
     Dates: start: 2012

REACTIONS (1)
  - White blood cell count increased [Not Recovered/Not Resolved]

NARRATIVE: CASE EVENT DATE: 2012
